FAERS Safety Report 17680860 (Version 1)
Quarter: 2020Q2

REPORT INFORMATION
  Report Type: Spontaneous
  Country: US (occurrence: US)
  Receive Date: 20200417
  Receipt Date: 20200417
  Transmission Date: 20200714
  Serious: No
  Sender: FDA-Public Use
  Company Number: US-TARO-2019TAR00443

PATIENT
  Sex: Female

DRUGS (1)
  1. PHENYTOIN ORAL SUSPENSION USP 125 MG/5ML [Suspect]
     Active Substance: PHENYTOIN
     Dosage: UNK
     Dates: start: 20190516

REACTIONS (1)
  - Blood glucose increased [Not Recovered/Not Resolved]

NARRATIVE: CASE EVENT DATE: 2019
